FAERS Safety Report 9507248 (Version 2)
Quarter: 2013Q4

REPORT INFORMATION
  Report Type: Spontaneous
  Country: US (occurrence: None)
  Receive Date: 20130904
  Receipt Date: 20131008
  Transmission Date: 20140711
  Serious: Yes (Hospitalization)
  Sender: FDA-Public Use
  Company Number: 2013-1054

PATIENT
  Age: 70 Year
  Sex: Male
  Weight: 84.55 kg

DRUGS (5)
  1. CARFILZOMIB [Suspect]
     Indication: PLASMA CELL MYELOMA
     Route: 042
     Dates: start: 20130513, end: 20130611
  2. PANOBINOSTAT (PANOBINOSTAT) (PANOBINOSTAT) [Concomitant]
  3. VITAMIN D (ERGOCALCIFEROL) (ERGOCALCIFEROL) [Concomitant]
  4. GINKO BILOBA (GINKGO BILOBA) (GINKGO BILOBA) [Concomitant]
  5. BACTRIM (SULFAMETHOXAZOLE, TRIMETHOPRIM) (SULFAMETHOXAZOLE, TRIMETHOPRIM0 [Concomitant]

REACTIONS (6)
  - Blood creatinine increased [None]
  - Dehydration [None]
  - Blood urea increased [None]
  - Blood lactate dehydrogenase increased [None]
  - Platelet count decreased [None]
  - Renal failure acute [None]
